FAERS Safety Report 21176577 (Version 2)
Quarter: 2023Q2

REPORT INFORMATION
  Report Type: Report from Study
  Country: CA (occurrence: None)
  Receive Date: 20220805
  Receipt Date: 20230616
  Transmission Date: 20230722
  Serious: Yes (Hospitalization, Other)
  Sender: FDA-Public Use
  Company Number: CA-PFIZER INC-202201028475

PATIENT
  Age: 67 Year
  Sex: Male
  Weight: 98 kg

DRUGS (19)
  1. METHOTREXATE [Suspect]
     Active Substance: METHOTREXATE
     Indication: Rheumatoid arthritis
  2. METHOTREXATE [Suspect]
     Active Substance: METHOTREXATE
  3. METHOTREXATE [Suspect]
     Active Substance: METHOTREXATE
  4. ATORVASTATIN CALCIUM [Suspect]
     Active Substance: ATORVASTATIN CALCIUM
     Indication: Product used for unknown indication
  5. FOLIC ACID [Suspect]
     Active Substance: FOLIC ACID
     Indication: Product used for unknown indication
  6. LURASIDONE HYDROCHLORIDE [Suspect]
     Active Substance: LURASIDONE HYDROCHLORIDE
     Indication: Product used for unknown indication
  7. OMEPRAZOLE [Suspect]
     Active Substance: OMEPRAZOLE
     Indication: Product used for unknown indication
  8. AVAPRO [Concomitant]
     Active Substance: IRBESARTAN
  9. CIPROFLOXACIN HYDROCHLORIDE [Concomitant]
     Active Substance: CIPROFLOXACIN HYDROCHLORIDE
  10. CYTOTEC [Concomitant]
     Active Substance: MISOPROSTOL
  11. ENBREL [Concomitant]
     Active Substance: ETANERCEPT
  12. ENBREL [Concomitant]
     Active Substance: ETANERCEPT
  13. LATUDA [Concomitant]
     Active Substance: LURASIDONE HYDROCHLORIDE
  14. LIPITOR [Concomitant]
     Active Substance: ATORVASTATIN CALCIUM
  15. NAPROXEN [Concomitant]
     Active Substance: NAPROXEN
  16. PLAQUENIL [Concomitant]
     Active Substance: HYDROXYCHLOROQUINE SULFATE
  17. FELODIPINE [Concomitant]
     Active Substance: FELODIPINE
  18. SULFASALAZINE [Concomitant]
     Active Substance: SULFASALAZINE
  19. HYDROXYCHLOROQUINE SULFATE [Concomitant]
     Active Substance: HYDROXYCHLOROQUINE SULFATE

REACTIONS (40)
  - Anal fissure [Unknown]
  - Arthralgia [Unknown]
  - Atelectasis [Unknown]
  - Blood albumin decreased [Unknown]
  - C-reactive protein increased [Unknown]
  - Chest pain [Unknown]
  - Dry skin [Unknown]
  - Dysstasia [Unknown]
  - Fall [Unknown]
  - Fatigue [Unknown]
  - Gait disturbance [Unknown]
  - Grip strength decreased [Unknown]
  - Haematochezia [Unknown]
  - Hypoaesthesia [Unknown]
  - Inflammation [Unknown]
  - Insomnia [Unknown]
  - Joint effusion [Unknown]
  - Joint swelling [Unknown]
  - Musculoskeletal stiffness [Unknown]
  - Nail bed bleeding [Unknown]
  - Night sweats [Unknown]
  - Nodule [Unknown]
  - Obstructive airways disorder [Unknown]
  - Oedema [Unknown]
  - Pain [Unknown]
  - Pain in extremity [Unknown]
  - Pain in jaw [Unknown]
  - Peripheral swelling [Unknown]
  - Pleural effusion [Unknown]
  - Pleuritic pain [Unknown]
  - Rales [Unknown]
  - Rash erythematous [Unknown]
  - Rash macular [Unknown]
  - Raynaud^s phenomenon [Unknown]
  - Red blood cell sedimentation rate increased [Unknown]
  - Rheumatoid arthritis [Unknown]
  - Skin discolouration [Unknown]
  - Spinal osteoarthritis [Unknown]
  - Thrombocytosis [Unknown]
  - Myositis [Unknown]
